FAERS Safety Report 10625069 (Version 1)
Quarter: 2014Q4

REPORT INFORMATION
  Report Type: Spontaneous
  Country: GB (occurrence: None)
  Receive Date: 20141121
  Receipt Date: 20141121
  Transmission Date: 20150529
  Serious: Yes (Other)
  Sender: FDA-Public Use
  Company Number: GAM-408-14-GB

PATIENT
  Age: 73 Year
  Sex: Male

DRUGS (2)
  1. OCTAGAM IMMUNE GLOBULIN (HUMAN) [Suspect]
     Active Substance: HUMAN IMMUNOGLOBULIN G
     Indication: PRODUCT USED FOR UNKNOWN INDICATION
     Route: 042
     Dates: start: 20140411, end: 20140411
  2. ACETYLSALICYLIC ACID [Concomitant]
     Active Substance: ASPIRIN

REACTIONS (8)
  - Jaw disorder [None]
  - Malaise [None]
  - Urticaria [None]
  - Swelling face [None]
  - Hypersensitivity [None]
  - Erythema [None]
  - Nerve compression [None]
  - Paraesthesia oral [None]

NARRATIVE: CASE EVENT DATE: 20141104
